FAERS Safety Report 12550750 (Version 1)
Quarter: 2016Q3

REPORT INFORMATION
  Report Type: Spontaneous
  Country: TR (occurrence: TR)
  Receive Date: 20160712
  Receipt Date: 20160712
  Transmission Date: 20161109
  Serious: Yes (Hospitalization, Other)
  Sender: FDA-Public Use
  Company Number: TR-BAUSCH-BL-2016-016660

PATIENT
  Age: 87 Year
  Sex: Female

DRUGS (6)
  1. FUROSEMIDE. [Concomitant]
     Active Substance: FUROSEMIDE
     Indication: PRODUCT USED FOR UNKNOWN INDICATION
  2. WARFARIN [Concomitant]
     Active Substance: WARFARIN
     Indication: PRODUCT USED FOR UNKNOWN INDICATION
  3. PERINDOPRIL [Concomitant]
     Active Substance: PERINDOPRIL
     Indication: PRODUCT USED FOR UNKNOWN INDICATION
  4. REPAGLINIDE. [Concomitant]
     Active Substance: REPAGLINIDE
     Indication: PRODUCT USED FOR UNKNOWN INDICATION
  5. NIFEDIPINE. [Suspect]
     Active Substance: NIFEDIPINE
     Indication: ATRIAL FIBRILLATION
     Route: 065
  6. DABIGATRAN [Interacting]
     Active Substance: DABIGATRAN
     Indication: INTERNATIONAL NORMALISED RATIO ABNORMAL
     Route: 065

REACTIONS (7)
  - Hypotension [Recovered/Resolved]
  - International normalised ratio increased [Recovered/Resolved]
  - Haemoglobin decreased [Not Recovered/Not Resolved]
  - Drug interaction [Recovered/Resolved]
  - Melaena [Recovered/Resolved]
  - Nausea [Recovered/Resolved]
  - Gastrointestinal haemorrhage [Recovered/Resolved]
